FAERS Safety Report 19829277 (Version 2)
Quarter: 2021Q3

REPORT INFORMATION
  Report Type: Spontaneous
  Country: US (occurrence: US)
  Receive Date: 20210914
  Receipt Date: 20210920
  Transmission Date: 20211014
  Serious: No
  Sender: FDA-Public Use
  Company Number: NVSC2021US205917

PATIENT
  Sex: Female

DRUGS (1)
  1. ADAKVEO [Suspect]
     Active Substance: CRIZANLIZUMAB-TMCA
     Indication: SICKLE CELL DISEASE
     Dosage: UNK UNK, QMO (INTO BLOODSTREAM VIA VEIN)
     Route: 042

REACTIONS (5)
  - Bone pain [Unknown]
  - Pain [Unknown]
  - Fatigue [Unknown]
  - Infusion related reaction [Unknown]
  - Pain in extremity [Unknown]
